FAERS Safety Report 5151669-8 (Version None)
Quarter: 2006Q4

REPORT INFORMATION
  Report Type: 
  Country: None (occurrence: None)
  Receive Date: 20061109
  Receipt Date: 20061108
  Transmission Date: 20070319
  Serious: Yes (Death)
  Sender: FDA-Public Use
  Company Number: 06H-163-0311087-00

PATIENT
  Age: 44 Year
  Sex: Male
  Weight: 154.223 kg

DRUGS (4)
  1. MORPHINE SULFATE [Suspect]
     Indication: PAIN
     Dosage: SEE IMAGE, INTRAVENOUS
     Route: 042
     Dates: start: 20061024
  2. FENTANYL [Concomitant]
  3. AMBIEN [Concomitant]
  4. TORADOL [Concomitant]

REACTIONS (3)
  - CARDIO-RESPIRATORY ARREST [None]
  - DYSPNOEA [None]
  - LOSS OF CONSCIOUSNESS [None]
